FAERS Safety Report 13280555 (Version 2)
Quarter: 2017Q3

REPORT INFORMATION
  Report Type: Report from Study
  Country: None (occurrence: US)
  Receive Date: 20170301
  Receipt Date: 20170726
  Transmission Date: 20171127
  Serious: Yes (Life-Threatening, Hospitalization, Other)
  Sender: FDA-Public Use
  Company Number: US-ABBVIE-17K-163-1887598-00

PATIENT
  Sex: Female
  Weight: 91.71 kg

DRUGS (2)
  1. HUMIRA [Suspect]
     Active Substance: ADALIMUMAB
     Indication: CROHN^S DISEASE
     Route: 058
     Dates: start: 2015, end: 201702
  2. HUMIRA [Suspect]
     Active Substance: ADALIMUMAB
     Indication: COLITIS ULCERATIVE

REACTIONS (21)
  - Pulmonary embolism [Unknown]
  - Thrombosis [Not Recovered/Not Resolved]
  - Syncope [Recovered/Resolved]
  - Respiratory failure [Recovered/Resolved]
  - Jaundice [Recovered/Resolved]
  - Hypoaesthesia [Recovered/Resolved]
  - Muscular weakness [Recovering/Resolving]
  - Renal failure [Recovered/Resolved]
  - Confusional state [Recovered/Resolved]
  - Weight decreased [Unknown]
  - Pallor [Recovered/Resolved]
  - Drug ineffective [Not Recovered/Not Resolved]
  - Clostridium difficile infection [Unknown]
  - Nausea [Not Recovered/Not Resolved]
  - Sepsis [Recovered/Resolved]
  - Vomiting [Not Recovered/Not Resolved]
  - Depression [Recovering/Resolving]
  - Colitis ulcerative [Recovered/Resolved]
  - Anxiety [Not Recovered/Not Resolved]
  - Incision site pain [Not Recovered/Not Resolved]
  - Neuralgia [Not Recovered/Not Resolved]

NARRATIVE: CASE EVENT DATE: 2017
